FAERS Safety Report 20873378 (Version 2)
Quarter: 2022Q2

REPORT INFORMATION
  Report Type: Spontaneous
  Country: US (occurrence: US)
  Receive Date: 20220525
  Receipt Date: 20220628
  Transmission Date: 20220721
  Serious: No
  Sender: FDA-Public Use
  Company Number: US-BRISTOL-MYERS SQUIBB COMPANY-2022-032095

PATIENT
  Age: 56 Year
  Sex: Female

DRUGS (2)
  1. REVLIMID [Suspect]
     Active Substance: LENALIDOMIDE
     Indication: Plasma cell myeloma
     Dosage: TAKE 1 CAPSULE BY MOUTH DAILY FOR 3 WEEKS ON AND 1 WEEK OFF
  2. REVLIMID [Suspect]
     Active Substance: LENALIDOMIDE
     Dosage: FREQUENCY :TAKE 1 CAPSULE BY MOUTH EVERY DAY FOR 3 WEEKS ON THEN 1 WEEK OFF
     Route: 048
     Dates: start: 20220215

REACTIONS (1)
  - Intentional product use issue [Unknown]
